FAERS Safety Report 21178120 (Version 1)
Quarter: 2022Q3

REPORT INFORMATION
  Report Type: Spontaneous
  Country: IT (occurrence: None)
  Receive Date: 20220805
  Receipt Date: 20220805
  Transmission Date: 20221027
  Serious: Yes (Other)
  Sender: FDA-Public Use
  Company Number: 2022A270129

PATIENT
  Age: 41 Year
  Sex: Male

DRUGS (2)
  1. QUETIAPINE [Suspect]
     Active Substance: QUETIAPINE
     Dosage: 2000.0MG UNKNOWN
     Route: 048
     Dates: start: 20220607, end: 20220607
  2. EN [Suspect]
     Active Substance: DELORAZEPAM
     Dosage: 20.0GTT UNKNOWN
     Route: 065
     Dates: start: 20220607, end: 20220607

REACTIONS (2)
  - Drug abuse [Recovering/Resolving]
  - Sopor [Recovering/Resolving]

NARRATIVE: CASE EVENT DATE: 20220607
